FAERS Safety Report 18043340 (Version 1)
Quarter: 2020Q3

REPORT INFORMATION
  Report Type: Spontaneous
  Country: US (occurrence: US)
  Receive Date: 20200720
  Receipt Date: 20200720
  Transmission Date: 20201103
  Serious: No
  Sender: FDA-Public Use
  Company Number: US-JNJFOC-20200721546

PATIENT
  Age: 44 Year
  Sex: Female
  Weight: 90.8 kg

DRUGS (5)
  1. INVEGA SUSTENNA [Suspect]
     Active Substance: PALIPERIDONE PALMITATE
  2. INVEGA SUSTENNA [Suspect]
     Active Substance: PALIPERIDONE PALMITATE
     Indication: SCHIZOPHRENIA
     Route: 030
  3. GABAPENTIN. [Concomitant]
     Active Substance: GABAPENTIN
  4. LAMICTAL [Concomitant]
     Active Substance: LAMOTRIGINE
  5. INVEGA SUSTENNA [Suspect]
     Active Substance: PALIPERIDONE PALMITATE

REACTIONS (2)
  - Psychotic disorder [Unknown]
  - Dyspareunia [Unknown]
